FAERS Safety Report 22998601 (Version 2)
Quarter: 2023Q4

REPORT INFORMATION
  Report Type: Spontaneous
  Country: US (occurrence: US)
  Receive Date: 20230928
  Receipt Date: 20231006
  Transmission Date: 20240109
  Serious: Yes (Death, Life-Threatening, Hospitalization, Other)
  Sender: FDA-Public Use
  Company Number: US-CIPLA LTD.-2023US05676

PATIENT

DRUGS (1)
  1. NAPROXEN [Suspect]
     Active Substance: NAPROXEN
     Dosage: UNK
     Route: 048

REACTIONS (17)
  - Cardiac arrest [Fatal]
  - Shock [Fatal]
  - Acute respiratory distress syndrome [Fatal]
  - Hypoxia [Fatal]
  - Intentional overdose [Fatal]
  - Metabolic acidosis [Fatal]
  - Coagulopathy [Fatal]
  - Multiple organ dysfunction syndrome [Fatal]
  - Haemodynamic instability [Fatal]
  - Toxicity to various agents [Fatal]
  - Acute kidney injury [Fatal]
  - Cardiac failure acute [Fatal]
  - Renal failure [Fatal]
  - Pulmonary oedema [Fatal]
  - Seizure [Fatal]
  - Myocardial ischaemia [Fatal]
  - Hypertransaminasaemia [Fatal]
